FAERS Safety Report 14837591 (Version 3)
Quarter: 2018Q2

REPORT INFORMATION
  Report Type: Spontaneous
  Country: US (occurrence: US)
  Receive Date: 20180502
  Receipt Date: 20180518
  Transmission Date: 20180711
  Serious: Yes (Other)
  Sender: FDA-Public Use
  Company Number: US-ASTRAZENECA-2018SE57871

PATIENT
  Sex: Female
  Weight: 47.6 kg

DRUGS (22)
  1. DALIRESP [Suspect]
     Active Substance: ROFLUMILAST
     Indication: CHRONIC OBSTRUCTIVE PULMONARY DISEASE
     Route: 048
     Dates: start: 201803
  2. INCRUSE ELLIPTIC [Concomitant]
     Dosage: DAILY
  3. DELTASONE [Concomitant]
     Active Substance: PREDNISONE
     Dosage: 4 TABLETS DAILY X 3 DAYS
  4. MULTIVITAMINE [Concomitant]
     Route: 048
  5. PROAIR HFA [Concomitant]
     Active Substance: ALBUTEROL SULFATE
     Indication: WHEEZING
     Dosage: INHALE TWO PUFFS EVERY 4 HOURS AS NEEDED
  6. NICOTROL [Concomitant]
     Active Substance: NICOTINE
     Dosage: 10 MG INHALER
  7. DELTASONE [Concomitant]
     Active Substance: PREDNISONE
     Dosage: 2 TABLETS DAILY X 3 DAYS
  8. TOPAMAX [Concomitant]
     Active Substance: TOPIRAMATE
     Route: 048
  9. ALBUTEROL. [Concomitant]
     Active Substance: ALBUTEROL
     Indication: CHRONIC OBSTRUCTIVE PULMONARY DISEASE
  10. PROVENTIL [Concomitant]
     Active Substance: ALBUTEROL
     Dosage: 2.5 MG/3 ML, TAKE 3 ML EVERY 6 HOURS
  11. MAGNESIUM [Concomitant]
     Active Substance: MAGNESIUM
     Route: 048
  12. PRISTIQ EXTENDED-RELEASE [Concomitant]
     Active Substance: DESVENLAFAXINE SUCCINATE
     Route: 048
  13. DELTASONE [Concomitant]
     Active Substance: PREDNISONE
     Dosage: 3 TABLETS DAILY X 3 DAYS
  14. DALIRESP [Suspect]
     Active Substance: ROFLUMILAST
     Indication: CHRONIC OBSTRUCTIVE PULMONARY DISEASE
     Route: 048
     Dates: start: 20180419, end: 20180426
  15. BENADRYL [Concomitant]
     Active Substance: DIPHENHYDRAMINE HYDROCHLORIDE
     Dosage: 50.0MG AS REQUIRED
     Route: 048
  16. RITALIN [Concomitant]
     Active Substance: METHYLPHENIDATE HYDROCHLORIDE
     Route: 048
  17. FLONASE [Concomitant]
     Active Substance: FLUTICASONE PROPIONATE
     Dosage: 1 SPRAY INTO EACH NOSTRIL DAILY
     Route: 045
  18. MAXALT-MLT [Concomitant]
     Active Substance: RIZATRIPTAN BENZOATE
     Indication: MIGRAINE
     Dosage: 10.0MG AS REQUIRED
     Route: 048
  19. BREO ELLIPTA [Concomitant]
     Active Substance: FLUTICASONE FUROATE\VILANTEROL TRIFENATATE
     Dosage: ONE RESPIRATORY INHALATION DAILY
     Route: 055
  20. TYLENOL [Concomitant]
     Active Substance: ACETAMINOPHEN
     Dosage: 300-30MG, TAKE 2 TAB BY MOUTH EVERY 6 (SIX) HOURS AS NEEDED FOR PAIN
     Route: 048
  21. AFRIN [Concomitant]
     Active Substance: OXYMETAZOLINE
     Dosage: 2 SPRAY 2 TIMES A DAY
     Route: 045
  22. DELTASONE [Concomitant]
     Active Substance: PREDNISONE
     Dosage: 1 TABLETS DAILY X 3 DAYS

REACTIONS (17)
  - Weight fluctuation [Not Recovered/Not Resolved]
  - Fall [Unknown]
  - Insomnia [Not Recovered/Not Resolved]
  - Dizziness [Unknown]
  - Depression suicidal [Not Recovered/Not Resolved]
  - Anxiety [Not Recovered/Not Resolved]
  - Weight decreased [Not Recovered/Not Resolved]
  - Syncope [Unknown]
  - Depression [Not Recovered/Not Resolved]
  - Drug hypersensitivity [Unknown]
  - Cerebral disorder [Not Recovered/Not Resolved]
  - Anger [Not Recovered/Not Resolved]
  - Sleep apnoea syndrome [Unknown]
  - Drug dose omission [Not Recovered/Not Resolved]
  - Confusional state [Not Recovered/Not Resolved]
  - Narcolepsy [Unknown]
  - Headache [Not Recovered/Not Resolved]
